APPROVED DRUG PRODUCT: EXSEL
Active Ingredient: SELENIUM SULFIDE
Strength: 2.5%
Dosage Form/Route: LOTION/SHAMPOO;TOPICAL
Application: A083892 | Product #001
Applicant: ALLERGAN HERBERT DIV ALLERGAN INC
Approved: Approved Prior to Jan 1, 1982 | RLD: No | RS: No | Type: DISCN